FAERS Safety Report 16942949 (Version 3)
Quarter: 2019Q4

REPORT INFORMATION
  Report Type: Spontaneous
  Country: US (occurrence: US)
  Receive Date: 20191021
  Receipt Date: 20191113
  Transmission Date: 20200122
  Serious: Yes (Death, Hospitalization, Other)
  Sender: FDA-Public Use
  Company Number: US-ALLERGAN-1941866US

PATIENT
  Sex: Female

DRUGS (1)
  1. VIBERZI [Suspect]
     Active Substance: ELUXADOLINE
     Indication: IRRITABLE BOWEL SYNDROME
     Dosage: 75 MG
     Route: 048
     Dates: start: 20190926

REACTIONS (7)
  - Constipation [Unknown]
  - Acute kidney injury [Fatal]
  - Hypothyroidism [Fatal]
  - Bradycardia [Unknown]
  - Intestinal obstruction [Fatal]
  - Abdominal pain [Unknown]
  - Atrioventricular block [Fatal]

NARRATIVE: CASE EVENT DATE: 20191002
